FAERS Safety Report 9442552 (Version 1)
Quarter: 2013Q3

REPORT INFORMATION
  Report Type: Spontaneous
  Country: US (occurrence: None)
  Receive Date: 20130805
  Receipt Date: 20130805
  Transmission Date: 20140515
  Serious: No
  Sender: FDA-Public Use
  Company Number: None

PATIENT
  Age: 30 Year
  Sex: Female
  Weight: 61.4 kg

DRUGS (2)
  1. LEVONORGESTREL [Suspect]
     Dates: start: 20110601
  2. ISOTRETINOIN [Suspect]
     Dosage: 60 MG A DAY PO
     Route: 048
     Dates: start: 20130201, end: 20130501

REACTIONS (1)
  - Deep vein thrombosis [None]
